FAERS Safety Report 7816438-6 (Version None)
Quarter: 2011Q4

REPORT INFORMATION
  Report Type: 
  Country: None (occurrence: None)
  Receive Date: 20111017
  Receipt Date: 20111006
  Transmission Date: 20120403
  Serious: Yes (Other)
  Sender: FDA-Public Use
  Company Number: US-JNJFOC-20111003769

PATIENT
  Sex: Female
  Weight: 68.04 kg

DRUGS (8)
  1. SINGULAIR [Concomitant]
     Route: 048
  2. RISPERDAL CONSTA [Suspect]
     Indication: POST-TRAUMATIC STRESS DISORDER
     Route: 030
  3. NEMBUTAL [Concomitant]
     Route: 048
  4. RAMIPRIL [Concomitant]
     Route: 048
  5. CETIRIZINE HCL [Concomitant]
     Indication: MULTIPLE ALLERGIES
     Route: 048
  6. ZOLPIDEM [Concomitant]
     Indication: SLEEP DISORDER
     Dosage: 1 AT BED TIME
     Route: 048
  7. CLONAZEPAM [Concomitant]
     Indication: ANXIETY
     Route: 048
  8. TRAZODONE HYDROCHLORIDE [Concomitant]
     Indication: ANXIETY
     Route: 048

REACTIONS (4)
  - PULMONARY OEDEMA [None]
  - HYPERSENSITIVITY [None]
  - INJECTION SITE RASH [None]
  - RASH GENERALISED [None]
